FAERS Safety Report 7018098-3 (Version None)
Quarter: 2010Q3

REPORT INFORMATION
  Report Type: 
  Country: None (occurrence: None)
  Receive Date: 20100928
  Receipt Date: 20100924
  Transmission Date: 20110219
  Serious: Yes (Other)
  Sender: FDA-Public Use
  Company Number: PHHY2010US59795

PATIENT
  Sex: Female

DRUGS (2)
  1. TEGRETOL-XR [Suspect]
     Dosage: 400 MG, BID
     Route: 048
  2. TEGRETOL-XR [Suspect]
     Dosage: 800 UNK, UNK

REACTIONS (8)
  - ANXIETY [None]
  - CONVULSION [None]
  - COORDINATION ABNORMAL [None]
  - DEPRESSION [None]
  - ENCEPHALOPATHY [None]
  - FEELING ABNORMAL [None]
  - MALAISE [None]
  - REFLEXES ABNORMAL [None]
